FAERS Safety Report 9279176 (Version 1)
Quarter: 2013Q2

REPORT INFORMATION
  Report Type: Spontaneous
  Country: BR (occurrence: BR)
  Receive Date: 20130508
  Receipt Date: 20130508
  Transmission Date: 20140414
  Serious: Yes (Hospitalization, Other)
  Sender: FDA-Public Use
  Company Number: BR-ASTRAZENECA-2013SE30400

PATIENT
  Age: 28885 Day
  Sex: Male
  Weight: 70 kg

DRUGS (8)
  1. ATACAND HCT [Suspect]
     Indication: HYPERTENSION
     Dosage: 16/12.5 MG, DAILY
     Route: 048
  2. CRESTOR [Suspect]
     Dosage: DAILY
     Route: 048
  3. BRILINTA [Suspect]
     Indication: MYOCARDIAL INFARCTION
     Route: 048
     Dates: start: 20130427
  4. OMEPRAZOLE (GLOBO) [Suspect]
     Indication: ABDOMINAL HERNIA
     Route: 048
  5. RASILEZ [Concomitant]
     Indication: BLOOD CHOLESTEROL INCREASED
     Dates: start: 201205
  6. CLOPIDOGREL [Concomitant]
     Dates: start: 201206, end: 201304
  7. ASA [Concomitant]
  8. METTA SR [Concomitant]
     Indication: DIABETES MELLITUS

REACTIONS (8)
  - Myocardial infarction [Recovered/Resolved]
  - Venous occlusion [Recovered/Resolved]
  - Diabetes mellitus [Recovering/Resolving]
  - Blood pressure increased [Recovered/Resolved]
  - Cold sweat [Recovered/Resolved]
  - Abdominal hernia [Recovering/Resolving]
  - Fatigue [Recovered/Resolved]
  - Drug ineffective [Unknown]
